FAERS Safety Report 4858697-8 (Version None)
Quarter: 2005Q4

REPORT INFORMATION
  Report Type: 
  Country: None (occurrence: None)
  Receive Date: 20051219
  Receipt Date: 20051019
  Transmission Date: 20060501
  Serious: No
  Sender: FDA-Public Use
  Company Number: US-GLAXOSMITHKLINE-A0578854A

PATIENT
  Age: 38 Year
  Sex: Female

DRUGS (2)
  1. EQUATE NTS 21MG [Suspect]
  2. EQUATE NTS 14MG [Suspect]

REACTIONS (1)
  - APPLICATION SITE PAIN [None]
